FAERS Safety Report 10166077 (Version 3)
Quarter: 2014Q2

REPORT INFORMATION
  Report Type: Spontaneous
  Country: FR (occurrence: FR)
  Receive Date: 20140512
  Receipt Date: 20140521
  Transmission Date: 20141212
  Serious: Yes (Hospitalization)
  Sender: FDA-Public Use
  Company Number: FR-PFIZER INC-2014123333

PATIENT
  Age: 57 Year
  Sex: Female
  Weight: 100 kg

DRUGS (12)
  1. TAZOCILLINE [Suspect]
     Indication: SUPERINFECTION
     Dosage: 4 G, 3X/DAY, (07:00 AM, 01:00 PM AND 07:00 PM)
     Dates: start: 201312
  2. SODIUM CHLORIDE [Suspect]
     Indication: SUPERINFECTION
     Dosage: 1 L, 1X/DAY
     Dates: start: 201312, end: 201401
  3. VANCOMYCIN ^SANDOZ^ [Suspect]
     Indication: SUPERINFECTION
     Dosage: 2.5 G, DAILY (1 G AT 07 AM + 1.5 G AT 07 PM)
     Dates: start: 201312, end: 201401
  4. TAHOR [Concomitant]
  5. CARDENSIEL [Concomitant]
  6. NOVORAPID [Concomitant]
  7. LANTUS [Concomitant]
  8. DAFALGAN [Concomitant]
  9. INEXIUM [Concomitant]
  10. KARDEGIC [Concomitant]
  11. LEVOTHYROX [Concomitant]
  12. EZETROL [Concomitant]

REACTIONS (3)
  - Drug prescribing error [Recovered/Resolved]
  - Drug level above therapeutic [Recovered/Resolved]
  - Fluid overload [Recovered/Resolved]
